FAERS Safety Report 8871009 (Version 1)
Quarter: 2012Q4

REPORT INFORMATION
  Report Type: 
  Country: US (occurrence: US)
  Receive Date: 20121026
  Receipt Date: 20121026
  Transmission Date: 20130627
  Serious: No
  Sender: FDA-Public Use
  Company Number: US-AMGEN-USASP2012044116

PATIENT
  Age: 49 Year
  Sex: Male
  Weight: 52.15 kg

DRUGS (4)
  1. ENBREL [Suspect]
     Indication: ANKYLOSING SPONDYLITIS
     Dosage: 50 mg, qwk
     Route: 058
     Dates: start: 2000
  2. ATIVAN [Concomitant]
     Dosage: 0.5 mg, UNK
  3. NORVASC [Concomitant]
     Dosage: 2.5 mg, UNK
  4. LOMOTIL [Concomitant]
     Dosage: 2.5 mg, UNK

REACTIONS (1)
  - Drug ineffective [Unknown]
